FAERS Safety Report 17915284 (Version 4)
Quarter: 2020Q3

REPORT INFORMATION
  Report Type: Spontaneous
  Country: JP (occurrence: JP)
  Receive Date: 20200619
  Receipt Date: 20200704
  Transmission Date: 20201103
  Serious: Yes (Hospitalization, Other)
  Sender: FDA-Public Use
  Company Number: JP-AMGEN-JPNSP2020094594

PATIENT
  Age: 78 Year
  Sex: Male
  Weight: 53.5 kg

DRUGS (5)
  1. MAXACALCITOL [Concomitant]
     Active Substance: MAXACALCITOL
     Dosage: 2.5 MUG, Q56H
     Route: 041
  2. PARSABIV [Suspect]
     Active Substance: ETELCALCETIDE HYDROCHLORIDE
     Dosage: 2.5 MG, Q56H
     Route: 010
     Dates: start: 20190826
  3. FOSRENOL [Concomitant]
     Active Substance: LANTHANUM CARBONATE
     Dosage: 1500 MG
     Route: 048
     Dates: end: 20200416
  4. PARSABIV [Suspect]
     Active Substance: ETELCALCETIDE HYDROCHLORIDE
     Indication: HYPERPARATHYROIDISM SECONDARY
     Dosage: 5 MG, Q56H
     Route: 010
     Dates: start: 20190619, end: 20190823
  5. LANTHANUM CARBONATE. [Concomitant]
     Active Substance: LANTHANUM CARBONATE
     Dosage: 1500 MG
     Route: 048
     Dates: start: 20200417

REACTIONS (7)
  - Shunt occlusion [Recovering/Resolving]
  - Shunt occlusion [Recovering/Resolving]
  - Hypocalcaemia [Recovering/Resolving]
  - Shunt occlusion [Recovering/Resolving]
  - Shunt occlusion [Recovering/Resolving]
  - Shunt occlusion [Recovering/Resolving]
  - Shunt occlusion [Recovering/Resolving]

NARRATIVE: CASE EVENT DATE: 20190708
